FAERS Safety Report 14088630 (Version 1)
Quarter: 2017Q4

REPORT INFORMATION
  Report Type: Spontaneous
  Country: FR (occurrence: FR)
  Receive Date: 20171013
  Receipt Date: 20171013
  Transmission Date: 20180321
  Serious: Yes (Death)
  Sender: FDA-Public Use
  Company Number: FR-SA-2017SA196101

PATIENT
  Age: 83 Year
  Sex: Female

DRUGS (14)
  1. BISOPROLOL HEMIFUMARATE [Suspect]
     Active Substance: BISOPROLOL FUMARATE
     Route: 048
  2. DIFFU K [Suspect]
     Active Substance: POTASSIUM CHLORIDE
     Route: 048
  3. SPASFON [Concomitant]
     Active Substance: PHLOROGLUCINOL\1,3,5-TRIMETHOXYBENZENE
  4. UVEDOSE [Concomitant]
     Active Substance: CHOLECALCIFEROL
     Route: 065
  5. INSPRA [Suspect]
     Active Substance: EPLERENONE
     Route: 048
  6. TARDYFERON [Suspect]
     Active Substance: FERROUS SULFATE
     Route: 048
  7. TEMESTA (LORAZEPAM) [Suspect]
     Active Substance: LORAZEPAM
     Route: 048
  8. TRIMEBUTINE MALEATE [Concomitant]
     Active Substance: TRIMEBUTINE MALEATE
  9. CLOPIDOGREL BISULFATE. [Suspect]
     Active Substance: CLOPIDOGREL BISULFATE
     Route: 048
  10. KARDEGIC [Suspect]
     Active Substance: ASPIRIN DL-LYSINE
     Route: 048
  11. RAMIPRIL. [Suspect]
     Active Substance: RAMIPRIL
     Route: 048
  12. EUPHYTOSE [Suspect]
     Active Substance: HERBALS
     Route: 048
     Dates: start: 201708
  13. LASILIX FAIBLE [Suspect]
     Active Substance: FUROSEMIDE
     Route: 048
  14. TAHOR [Suspect]
     Active Substance: ATORVASTATIN CALCIUM
     Route: 048

REACTIONS (3)
  - Acute pulmonary oedema [Fatal]
  - Cardiac arrest [Fatal]
  - Atrioventricular block [Fatal]

NARRATIVE: CASE EVENT DATE: 20170830
